FAERS Safety Report 6071523-7 (Version None)
Quarter: 2009Q1

REPORT INFORMATION
  Report Type: 
  Country: None (occurrence: None)
  Receive Date: 20090205
  Receipt Date: 20090205
  Transmission Date: 20090719
  Serious: No
  Sender: FDA-Public Use
  Company Number: None

PATIENT
  Age: 39 Year
  Sex: Male

DRUGS (4)
  1. METHYL-MASTERDROL [Suspect]
     Dosage: STOP DATE 3-4 WEEKS LATER
     Dates: start: 20060501
  2. CELL-TECH [Suspect]
     Dates: start: 20060701, end: 20060722
  3. METHYL I-D [Suspect]
     Dates: start: 20060701, end: 20060722
  4. AMOXICILLIN [Suspect]
     Dates: start: 20060626, end: 20060702

REACTIONS (2)
  - HEPATITIS CHOLESTATIC [None]
  - LIVER INJURY [None]
